FAERS Safety Report 23044044 (Version 1)
Quarter: 2023Q4

REPORT INFORMATION
  Report Type: Other
  Country: US (occurrence: None)
  Receive Date: 20231009
  Receipt Date: 20231009
  Transmission Date: 20240109
  Serious: No
  Sender: FDA-Public Use
  Company Number: US-ROCHE-3430583

PATIENT
  Age: 77 Year
  Sex: Female

DRUGS (7)
  1. OCREVUS [Suspect]
     Active Substance: OCRELIZUMAB
     Indication: Multiple sclerosis
     Dosage: LAST DOSE WAS ON 08/MAR/2023.
     Route: 042
     Dates: start: 20220831
  2. LEXAPRO [Concomitant]
     Active Substance: ESCITALOPRAM OXALATE
  3. BUPROPION HYDROCHLORIDE [Concomitant]
     Active Substance: BUPROPION HYDROCHLORIDE
  4. SYNTHROID [Concomitant]
     Active Substance: LEVOTHYROXINE SODIUM
  5. METFORMIN [Concomitant]
     Active Substance: METFORMIN HYDROCHLORIDE
  6. GABAPENTIN [Concomitant]
     Active Substance: GABAPENTIN
  7. OXYBUTYNIN [Concomitant]
     Active Substance: OXYBUTYNIN

REACTIONS (9)
  - JC polyomavirus test positive [Not Recovered/Not Resolved]
  - Hyperreflexia [Unknown]
  - Fall [Unknown]
  - Weight increased [Unknown]
  - Snoring [Unknown]
  - Tremor [Unknown]
  - Anxiety [Unknown]
  - Depression [Unknown]
  - Balance disorder [Unknown]
